FAERS Safety Report 4566728-8 (Version None)
Quarter: 2005Q1

REPORT INFORMATION
  Report Type: 
  Country: None (occurrence: None)
  Receive Date: 20050201
  Receipt Date: 20011002
  Transmission Date: 20050727
  Serious: Yes (Other)
  Sender: FDA-Public Use
  Company Number: US-BRISTOL-MYERS SQUIBB COMPANY-11036779

PATIENT
  Age: 34 Year
  Sex: Female

DRUGS (6)
  1. STADOL [Suspect]
     Route: 045
     Dates: start: 19980101
  2. PROPOXYPHENE NAPSYLATE + ASA [Concomitant]
  3. CELEBREX [Concomitant]
  4. CLONAZEPAM [Concomitant]
  5. NEURONTIN [Concomitant]
  6. VERAPAMIL [Concomitant]

REACTIONS (1)
  - DEPENDENCE [None]
